FAERS Safety Report 9980834 (Version 2)
Quarter: 2014Q2

REPORT INFORMATION
  Report Type: Spontaneous
  Country: GB (occurrence: GB)
  Receive Date: 20140307
  Receipt Date: 20140516
  Transmission Date: 20141212
  Serious: Yes (Hospitalization, Other)
  Sender: FDA-Public Use
  Company Number: GB-ASTRAZENECA-2014SE15392

PATIENT
  Age: 21 Year
  Sex: Female
  Weight: 84 kg

DRUGS (13)
  1. QUETIAPINE [Suspect]
     Route: 048
     Dates: start: 201311, end: 201401
  2. CITALOPRAM [Suspect]
     Indication: DEPRESSION
     Route: 065
     Dates: start: 201302
  3. RISPERIDONE [Suspect]
     Indication: AGITATION
     Route: 065
  4. STRATTERA [Suspect]
     Indication: ATTENTION DEFICIT/HYPERACTIVITY DISORDER
     Route: 048
     Dates: start: 20121002
  5. STRATTERA [Suspect]
     Indication: ATTENTION DEFICIT/HYPERACTIVITY DISORDER
     Route: 048
     Dates: start: 201211
  6. STRATTERA [Suspect]
     Indication: ATTENTION DEFICIT/HYPERACTIVITY DISORDER
     Route: 048
     Dates: start: 201301
  7. STRATTERA [Suspect]
     Indication: ATTENTION DEFICIT/HYPERACTIVITY DISORDER
     Route: 048
     Dates: start: 201305
  8. STRATTERA [Suspect]
     Indication: ATTENTION DEFICIT/HYPERACTIVITY DISORDER
     Route: 048
     Dates: start: 201308
  9. STRATTERA [Suspect]
     Indication: ATTENTION DEFICIT/HYPERACTIVITY DISORDER
     Route: 048
     Dates: start: 201310, end: 201310
  10. STRATTERA [Suspect]
     Indication: ATTENTION DEFICIT/HYPERACTIVITY DISORDER
     Route: 048
     Dates: start: 201311, end: 201312
  11. CIRCADIN [Concomitant]
     Indication: INSOMNIA
     Dates: start: 201306
  12. SERTRALINE [Concomitant]
     Indication: AGITATION
     Dates: start: 201310
  13. CONCERTA XL [Concomitant]

REACTIONS (10)
  - Attention deficit/hyperactivity disorder [Not Recovered/Not Resolved]
  - Bipolar I disorder [Not Recovered/Not Resolved]
  - Sedation [Not Recovered/Not Resolved]
  - Somnolence [Not Recovered/Not Resolved]
  - Agitation [Not Recovered/Not Resolved]
  - Depression [Not Recovered/Not Resolved]
  - Major depression [Not Recovered/Not Resolved]
  - Merycism [Not Recovered/Not Resolved]
  - Paranoia [Unknown]
  - Intentional product misuse [Unknown]
